FAERS Safety Report 8222170-X (Version None)
Quarter: 2012Q1

REPORT INFORMATION
  Report Type: 
  Country: None (occurrence: None)
  Receive Date: 20120320
  Receipt Date: 20120309
  Transmission Date: 20120608
  Serious: Yes (Hospitalization)
  Sender: FDA-Public Use
  Company Number: US-JNJFOC-20120306741

PATIENT
  Sex: Male
  Weight: 62.7 kg

DRUGS (10)
  1. CIMZIA [Concomitant]
     Indication: INFLAMMATORY BOWEL DISEASE
     Dates: start: 20111026
  2. MERCAPTOPURINE [Concomitant]
  3. ADAPALENE/BENZOYL PEROXIDE [Concomitant]
  4. OPTIVAR [Concomitant]
  5. PERCOCET [Concomitant]
  6. NEXIUM [Concomitant]
  7. PREDNISONE TAB [Concomitant]
  8. REMICADE [Suspect]
     Indication: INFLAMMATORY BOWEL DISEASE
     Route: 042
     Dates: start: 20051114, end: 20110201
  9. BENADRYL [Concomitant]
  10. MARIJUANA [Concomitant]

REACTIONS (1)
  - CROHN'S DISEASE [None]
